FAERS Safety Report 6063917-0 (Version None)
Quarter: 2009Q1

REPORT INFORMATION
  Report Type: 
  Country: None (occurrence: None)
  Receive Date: 20090204
  Receipt Date: 20090122
  Transmission Date: 20090719
  Serious: Yes (Other)
  Sender: FDA-Public Use
  Company Number: PHHY2009BR02670

PATIENT
  Sex: Male

DRUGS (5)
  1. TRILEPTAL [Suspect]
     Indication: EPILEPSY
     Dosage: 7.5ML IN THE MORNING AND 8.5ML
     Route: 048
  2. TRILEPTAL [Suspect]
     Dosage: 5ML
     Route: 048
     Dates: start: 20081001
  3. TRILEPTAL [Suspect]
     Dosage: 0.5ML EVERY 3 DAYS
     Route: 048
  4. TRILEPTAL [Suspect]
     Dosage: 7.5ML IN THE MORNING AND 8.5ML
     Route: 048
     Dates: start: 20081201
  5. TRILEPTAL [Suspect]
     Dosage: 8.5ML IN THE MORNING AND 8.5ML AT NIGHT
     Route: 048

REACTIONS (11)
  - CONVULSION [None]
  - DRUG ADMINISTRATION ERROR [None]
  - DRUG LEVEL DECREASED [None]
  - ELECTROENCEPHALOGRAM ABNORMAL [None]
  - IRRITABILITY [None]
  - MUTISM [None]
  - NAUSEA [None]
  - NERVOUSNESS [None]
  - PARAESTHESIA [None]
  - PARAESTHESIA ORAL [None]
  - URINARY INCONTINENCE [None]
